FAERS Safety Report 18762657 (Version 3)
Quarter: 2021Q1

REPORT INFORMATION
  Report Type: Report from Study
  Country: CA (occurrence: CA)
  Receive Date: 20210120
  Receipt Date: 20210303
  Transmission Date: 20210419
  Serious: Yes (Other)
  Sender: FDA-Public Use
  Company Number: CA-NALPROPION PHARMACEUTICALS INC.-2020-010518

PATIENT

DRUGS (21)
  1. BUPROPION                          /00700502/ [Suspect]
     Active Substance: BUPROPION HYDROCHLORIDE
     Indication: DEPRESSION
     Dosage: DAILY, STOP DATE: NEXT WEEK
     Route: 048
     Dates: start: 20200606
  2. ROBAXACET [Concomitant]
     Active Substance: ACETAMINOPHEN\METHOCARBAMOL
     Indication: MUSCLE RELAXANT THERAPY
     Dosage: UNK
  3. CONTRAVE [Suspect]
     Active Substance: BUPROPION HYDROCHLORIDE\NALTREXONE HYDROCHLORIDE
     Dosage: 90 MG/8 MG; 2 TAB IN MORN, 2 TAB IN EVE ???????2020
     Route: 048
     Dates: start: 20201127
  4. ADALAT [Concomitant]
     Active Substance: NIFEDIPINE
     Dosage: 90 MG
     Route: 048
     Dates: start: 20210117
  5. CONTRAVE [Suspect]
     Active Substance: BUPROPION HYDROCHLORIDE\NALTREXONE HYDROCHLORIDE
     Dosage: 90 MG/8 MG (1 IN 12 HR)
     Route: 048
     Dates: start: 20200613, end: 202006
  6. BUPROPION XL [Suspect]
     Active Substance: BUPROPION
     Indication: DEPRESSION
     Dosage: 300 MG
     Route: 048
     Dates: end: 20200530
  7. INDAPAMIDE. [Concomitant]
     Active Substance: INDAPAMIDE
     Indication: HYPERTENSION
     Dosage: 2.5 MG
     Route: 048
     Dates: end: 20200607
  8. INDAPAMIDE. [Concomitant]
     Active Substance: INDAPAMIDE
     Dosage: STOPPED: 22/JUN/2020 (APPROX)
     Route: 048
     Dates: start: 20200608, end: 202006
  9. ACETAMINOPHEN. [Concomitant]
     Active Substance: ACETAMINOPHEN
     Indication: MUSCLE RELAXANT THERAPY
     Dosage: 500 MG
  10. CONTRAVE [Suspect]
     Active Substance: BUPROPION HYDROCHLORIDE\NALTREXONE HYDROCHLORIDE
     Indication: WEIGHT CONTROL
     Dosage: 90 MG/8 MG (1 DOSAGE FORMS,1 IN 1 D)
     Route: 048
     Dates: start: 20200530, end: 202006
  11. CONTRAVE [Suspect]
     Active Substance: BUPROPION HYDROCHLORIDE\NALTREXONE HYDROCHLORIDE
     Dosage: 90 MG/8 MG; 1 TAB IN MORN, 1 TAB IN EVE ???NOV?2020
     Route: 048
     Dates: start: 20201120
  12. CONTRAVE [Suspect]
     Active Substance: BUPROPION HYDROCHLORIDE\NALTREXONE HYDROCHLORIDE
     Dosage: UNK
     Route: 048
     Dates: start: 202012
  13. METHOCARBAMOL. [Concomitant]
     Active Substance: METHOCARBAMOL
     Indication: MUSCLE RELAXANT THERAPY
     Dosage: 400 MG,
  14. ADALAT [Concomitant]
     Active Substance: NIFEDIPINE
     Dosage: 60 MG
     Route: 048
     Dates: start: 202012, end: 20210116
  15. CONTRAVE [Suspect]
     Active Substance: BUPROPION HYDROCHLORIDE\NALTREXONE HYDROCHLORIDE
     Dosage: 90 MG/8 MG; 1 TABLET IN THE MORNING AND 1 TABLET IN THE EVENING
     Route: 048
     Dates: start: 20201009, end: 202010
  16. CONTRAVE [Suspect]
     Active Substance: BUPROPION HYDROCHLORIDE\NALTREXONE HYDROCHLORIDE
     Dosage: 90 MG/8 MG (1 DOSAGE FORMS,1 IN 12 HR)
     Route: 048
     Dates: start: 20200606, end: 20200612
  17. ADALAT [Concomitant]
     Active Substance: NIFEDIPINE
     Indication: BLOOD PRESSURE INCREASED
     Dosage: 30 MG
     Route: 048
     Dates: end: 202012
  18. CONTRAVE [Suspect]
     Active Substance: BUPROPION HYDROCHLORIDE\NALTREXONE HYDROCHLORIDE
     Dosage: 90 MG/8 MG (2 TABS IN MORN, 1 TAB IN EVE) ???????2020
     Route: 048
     Dates: start: 20200620
  19. CONTRAVE [Suspect]
     Active Substance: BUPROPION HYDROCHLORIDE\NALTREXONE HYDROCHLORIDE
     Dosage: 90 MG/8 MG; 1 TABLET A DAY
     Route: 048
     Dates: start: 20201113, end: 20201119
  20. CONTRAVE [Suspect]
     Active Substance: BUPROPION HYDROCHLORIDE\NALTREXONE HYDROCHLORIDE
     Dosage: 90MG/8MG (1 DOSAGE FORMS, 1 IN 12 HR)
     Route: 048
     Dates: start: 20210207
  21. TYLENOL [Concomitant]
     Active Substance: ACETAMINOPHEN
     Indication: PRODUCT USED FOR UNKNOWN INDICATION
     Dosage: UNK

REACTIONS (19)
  - Appetite disorder [Not Recovered/Not Resolved]
  - Sleep disorder [Recovering/Resolving]
  - Joint stiffness [Not Recovered/Not Resolved]
  - Stress [Not Recovered/Not Resolved]
  - Fatigue [Not Recovered/Not Resolved]
  - Blood pressure increased [Recovering/Resolving]
  - Muscle spasms [Not Recovered/Not Resolved]
  - Contraindicated product administered [Unknown]
  - Blood pressure decreased [Recovered/Resolved]
  - Mobility decreased [Not Recovered/Not Resolved]
  - Abnormal dreams [Recovered/Resolved]
  - Dizziness [Not Recovered/Not Resolved]
  - Product prescribing error [Unknown]
  - Knee arthroplasty [Recovering/Resolving]
  - Weight increased [Unknown]
  - Pain in extremity [Not Recovered/Not Resolved]
  - Feeling abnormal [Unknown]
  - Arthralgia [Not Recovered/Not Resolved]
  - Drug titration error [Unknown]

NARRATIVE: CASE EVENT DATE: 2020
